FAERS Safety Report 15650189 (Version 2)
Quarter: 2018Q4

REPORT INFORMATION
  Report Type: Spontaneous
  Country: FI (occurrence: FI)
  Receive Date: 20181123
  Receipt Date: 20181207
  Transmission Date: 20190205
  Serious: Yes (Other)
  Sender: FDA-Public Use
  Company Number: FI-ROCHE-2216878

PATIENT
  Sex: Female

DRUGS (10)
  1. TREXAN (FINLAND) [Concomitant]
     Active Substance: METHOTREXATE
     Indication: POLYMYALGIA RHEUMATICA
  2. PREDNISOLON [Concomitant]
     Active Substance: PREDNISOLONE
     Indication: TEMPORAL ARTERITIS
     Dosage: 80 MG TO 60 MG
     Route: 065
     Dates: start: 201807
  3. PREDNISOLON [Concomitant]
     Active Substance: PREDNISOLONE
     Indication: POLYMYALGIA RHEUMATICA
     Route: 065
     Dates: start: 201811
  4. COTRIM [Concomitant]
     Active Substance: SULFAMETHOXAZOLE\TRIMETHOPRIM
     Dosage: 80/400 MG 1X1
     Route: 065
     Dates: start: 201807
  5. SIMVASTATIN. [Concomitant]
     Active Substance: SIMVASTATIN
  6. ROACTEMRA [Suspect]
     Active Substance: TOCILIZUMAB
     Indication: POLYMYALGIA RHEUMATICA
  7. COVERSYL NOVUM [Concomitant]
     Active Substance: PERINDOPRIL
  8. PANADOL FORTE [Concomitant]
     Route: 065
  9. TREXAN (FINLAND) [Concomitant]
     Active Substance: METHOTREXATE
     Indication: TEMPORAL ARTERITIS
     Route: 065
     Dates: start: 201807, end: 201808
  10. ROACTEMRA [Suspect]
     Active Substance: TOCILIZUMAB
     Indication: TEMPORAL ARTERITIS
     Route: 042
     Dates: start: 201807

REACTIONS (4)
  - Intentional product use issue [Unknown]
  - Blood pressure systolic increased [Unknown]
  - Off label use [Unknown]
  - Monoparesis [Not Recovered/Not Resolved]

NARRATIVE: CASE EVENT DATE: 201807
